FAERS Safety Report 17781679 (Version 1)
Quarter: 2020Q2

REPORT INFORMATION
  Report Type: Spontaneous
  Country: CA (occurrence: CA)
  Receive Date: 20200514
  Receipt Date: 20200514
  Transmission Date: 20200714
  Serious: Yes (Other)
  Sender: FDA-Public Use
  Company Number: CA-SAMSUNG BIOEPIS-SB-2020-15913

PATIENT
  Age: 64 Year
  Sex: Female

DRUGS (1)
  1. INFLIXIMAB [Suspect]
     Active Substance: INFLIXIMAB
     Indication: ANKYLOSING SPONDYLITIS
     Route: 042

REACTIONS (18)
  - Chills [Unknown]
  - Vision blurred [Unknown]
  - Dizziness [Unknown]
  - Myalgia [Unknown]
  - Intentional product use issue [Unknown]
  - Blood pressure fluctuation [Unknown]
  - Fatigue [Unknown]
  - Muscle spasms [Unknown]
  - Infusion related reaction [Unknown]
  - Chest discomfort [Unknown]
  - Asthenia [Unknown]
  - Arthralgia [Unknown]
  - Headache [Unknown]
  - Lethargy [Unknown]
  - Blood pressure increased [Unknown]
  - Dizziness postural [Unknown]
  - Flushing [Unknown]
  - Off label use [Unknown]
